FAERS Safety Report 7107403-5 (Version None)
Quarter: 2010Q4

REPORT INFORMATION
  Report Type: 
  Country: None (occurrence: None)
  Receive Date: 20101111
  Receipt Date: 20101111
  Transmission Date: 20110411
  Serious: No
  Sender: FDA-Public Use
  Company Number: None

PATIENT
  Age: 50 Year
  Sex: Female
  Weight: 52.1637 kg

DRUGS (5)
  1. AMERGE [Suspect]
     Indication: HEADACHE
     Dosage: 2.5 MG 1-2 TIMES DAILY PO
     Route: 048
     Dates: start: 20000101, end: 20101109
  2. IMITREX [Suspect]
     Indication: MIGRAINE
     Dosage: 100 MG 1 TABLET PRN PO
     Route: 048
     Dates: start: 20000101, end: 20101109
  3. TYLENOL #3 WITH CODEINE [Concomitant]
  4. FIORINAL [Concomitant]
  5. SUDAFED 12 HOUR [Concomitant]

REACTIONS (2)
  - BLOOD PRESSURE INCREASED [None]
  - CATARACT [None]
